FAERS Safety Report 9224839 (Version 2)
Quarter: 2013Q2

REPORT INFORMATION
  Report Type: Spontaneous
  Country: US (occurrence: None)
  Receive Date: 20130409
  Receipt Date: 20130415
  Transmission Date: 20140414
  Serious: Yes (Hospitalization)
  Sender: FDA-Public Use
  Company Number: AUR-APL-2013-02849

PATIENT
  Age: 60 Year
  Sex: Male

DRUGS (5)
  1. ESCITALOPRAM (ESCITALOPRAM) [Suspect]
     Indication: DEPRESSION
     Route: 048
  2. TRAZODONE (TRAZODONE) [Suspect]
     Indication: DEPRESSION
  3. METHYLTHIONINIUM CHLORIDE [Suspect]
     Indication: MEAN ARTERIAL PRESSURE
  4. PHENYLEPHRINE [Suspect]
     Indication: MEAN ARTERIAL PRESSURE
  5. METHYLTHIONINIUM CHLORIDE [Suspect]
     Indication: VASOPLEGIA SYNDROME

REACTIONS (6)
  - Hypotension [None]
  - Encephalopathy [None]
  - Serotonin syndrome [None]
  - Hypoxia [None]
  - Metabolic disorder [None]
  - Toxicity to various agents [None]
